FAERS Safety Report 7449077-X (Version None)
Quarter: 2011Q2

REPORT INFORMATION
  Report Type: 
  Country: None (occurrence: None)
  Receive Date: 20110502
  Receipt Date: 20081122
  Transmission Date: 20111010
  Serious: Yes (Hospitalization)
  Sender: FDA-Public Use
  Company Number: US-BAYER-200839513NA

PATIENT
  Age: 76 Year
  Sex: Male
  Weight: 110.66 kg

DRUGS (12)
  1. HEPARIN [Concomitant]
     Dosage: 16 ML,CPB
     Route: 042
     Dates: start: 20001114, end: 20001114
  2. NITROGLYCERIN [Concomitant]
     Dosage: UNK
     Route: 042
     Dates: start: 20001114
  3. PROTAMINE SULFATE [Concomitant]
     Dosage: 600 MG, UNK
     Route: 042
     Dates: start: 20001114
  4. AMICAR [Concomitant]
     Dosage: 5 G, UNK
     Route: 042
     Dates: start: 20001114
  5. ACETYLSALICYLIC ACID SRT [Concomitant]
     Route: 048
  6. TRASYLOL [Suspect]
     Indication: CORONARY ARTERY BYPASS
     Route: 042
     Dates: start: 20001114
  7. METOPROLOL SUCCINATE [Concomitant]
     Dosage: 50 MG, QD
     Route: 048
  8. ZOCOR [Concomitant]
     Dosage: UNK
     Route: 048
  9. UNIVASC [Concomitant]
     Route: 048
  10. HEPARIN [Concomitant]
     Dosage: 44000 U, UNK
     Route: 042
     Dates: start: 20001114
  11. VANCOMYCIN [Concomitant]
     Dosage: 1 G, UNK
     Route: 042
     Dates: start: 20001114
  12. BAYCOL [Concomitant]
     Route: 048

REACTIONS (10)
  - ANHEDONIA [None]
  - EMOTIONAL DISTRESS [None]
  - INJURY [None]
  - UNEVALUABLE EVENT [None]
  - CEREBROVASCULAR ACCIDENT [None]
  - PAIN [None]
  - DEPRESSION [None]
  - STRESS [None]
  - ANXIETY [None]
  - FEAR [None]
